FAERS Safety Report 4520408-3 (Version None)
Quarter: 2004Q4

REPORT INFORMATION
  Report Type: 
  Country: None (occurrence: None)
  Receive Date: 20041203
  Receipt Date: 20041124
  Transmission Date: 20050328
  Serious: Yes (Disabling)
  Sender: FDA-Public Use
  Company Number: 2004097832

PATIENT
  Sex: Male

DRUGS (1)
  1. NIFEDIPINE [Suspect]
     Indication: ILL-DEFINED DISORDER
     Dates: start: 20041020, end: 20041023

REACTIONS (4)
  - ASTHENIA [None]
  - IMMOBILE [None]
  - MINERAL DEFICIENCY [None]
  - TREMOR [None]
